FAERS Safety Report 9555473 (Version 2)
Quarter: 2014Q1

REPORT INFORMATION
  Report Type: Spontaneous
  Country: US (occurrence: None)
  Receive Date: 20130906
  Receipt Date: 20131205
  Transmission Date: 20141002
  Serious: Yes (Hospitalization, Other)
  Sender: FDA-Public Use
  Company Number: 163-POMAL-13081488

PATIENT
  Age: 60 Year
  Sex: Male
  Weight: 70.3 kg

DRUGS (40)
  1. POMALYST [Suspect]
     Indication: PLASMA CELL MYELOMA
     Dosage: 21 IN 28 D, PO
     Route: 048
     Dates: start: 20130613, end: 20131016
  2. CYMBALTA (DULOXETINE HYDROCHLORIDE) (UNKNOWN)? [Concomitant]
  3. PANTOPRAZOLE SODIUM (PANTOPRAZOLE SODIUM) (SUSTAINED-RELEASE TABLET) [Concomitant]
  4. DEXAMETHASONE (DEXAMETHASONE) (TABLETS) [Concomitant]
  5. LORAZEPAM (LORAZEPAM) (TABLETS) [Concomitant]
  6. FENTANYL (FENTANYL) (POULTICE OR PATCH) [Concomitant]
  7. ACYCLOVIR (ACICLOVIR) (TABLETS) [Concomitant]
  8. ZOFRAN (ONDANSETRON HYDROCHLORIDE) (TABLETS) [Concomitant]
  9. VITAMIN D (ERGOCALCIFEROL) [Concomitant]
  10. TRAZODONE (TRAZODONE) (TABLETS) [Concomitant]
  11. ASPIRIN (ACETYLSALICYLIC ACID) (TABLETS)? [Concomitant]
  12. CALCIUM (CALCIUM) (TABLETS) [Concomitant]
  13. MIRALAX (MACROGOL) (POWDER) [Concomitant]
  14. FISH OIL (FISH OIL) [Concomitant]
  15. MORPHINE SULFATE (MORPHINE SULFATE) (SUSTAINED-RELEASE TABLET) [Concomitant]
  16. HALDOL (HALOPERIDOL) [Concomitant]
  17. B COMPLEX (BECOSYM FORTE) (CAPSULES) [Concomitant]
  18. PANTOPRAZOLE SODIUM(PANTOPRAZOLE SODIUM) SUSTAINED-RELEASETABLET) [Concomitant]
  19. DEXAMETHASONE(DEXAMETHASONE)(UNKNOWN) [Concomitant]
  20. LORAZEPAM [Concomitant]
  21. FENTANYL [Concomitant]
  22. ACYCLOVIR [Concomitant]
  23. ZOFRAN(ONDANSETRON HYDROCHLORIDE)(TABLETS) [Concomitant]
  24. VITAMIN D(ERGOCALCIFEROL) [Concomitant]
  25. TRAZODONE(TRAZODONE)(TABLETS) [Concomitant]
  26. ASPIRIN(ACETYLSALICYLIC ACID)(TABLETS) [Concomitant]
  27. CALCIUM(CALCIUM)(TABLETS) [Concomitant]
  28. FISH OIL(FISH OIL) [Concomitant]
  29. HALDOL(HALOPERIDOL) [Concomitant]
  30. B COMPLEX(BECOSYM FORTE)(CAPSULES) [Concomitant]
  31. TYLENOL(PARACETAMOL)(UNKNOWN) [Concomitant]
  32. METRONIDAZOLE(METRONIDAZOLE)(UNKNOWN) [Concomitant]
  33. LEVAQUIN(LEVOFLOXACIN)(UNKNOWN) [Concomitant]
  34. SENNA(SENNA)(UNKNOWN) [Concomitant]
  35. MIRALAX(MACROGOL)(POWDER) [Concomitant]
  36. OXYGEN(OXYGEN)(UNKNOWN) [Concomitant]
  37. AMLODIPINE(AMLODIPINE)(UNKNOWN) [Concomitant]
  38. MS CONTIN(MORPHINE SULFATE)(SUSTAINED-RELEASE TABLET) [Concomitant]
  39. MS IR(MORPHINE SULFATE)(POULTICE OR PATCH) [Concomitant]
  40. CYMBALTA(DULOXETINE HYDROCHLORIDE)(UNKNOWN) [Concomitant]

REACTIONS (4)
  - Sepsis [None]
  - Nausea [None]
  - Stenotrophomonas infection [None]
  - Pancytopenia [None]
